FAERS Safety Report 7984108-X (Version None)
Quarter: 2011Q4

REPORT INFORMATION
  Report Type: 
  Country: None (occurrence: None)
  Receive Date: 20111216
  Receipt Date: 20111214
  Transmission Date: 20120403
  Serious: No
  Sender: FDA-Public Use
  Company Number: US-PFIZER INC-2011305594

PATIENT
  Sex: Male
  Weight: 68.027 kg

DRUGS (1)
  1. GEODON [Suspect]
     Indication: BIPOLAR DISORDER
     Dosage: 40 MG IN THE MORNING AND 80 MG AT NIGHT
     Route: 048
     Dates: start: 20080101

REACTIONS (2)
  - INSOMNIA [None]
  - COLD SWEAT [None]
